FAERS Safety Report 9303378 (Version 1)
Quarter: 2013Q2

REPORT INFORMATION
  Report Type: Spontaneous
  Country: US (occurrence: US)
  Receive Date: 20130522
  Receipt Date: 20130522
  Transmission Date: 20140414
  Serious: No
  Sender: FDA-Public Use
  Company Number: US-PFIZER INC-2013154387

PATIENT
  Age: 76 Year
  Sex: Female

DRUGS (1)
  1. LEVOXYL [Suspect]
     Indication: HYPOTHYROIDISM
     Dosage: 75 UG, 1X/DAY
     Route: 048
     Dates: start: 2012

REACTIONS (7)
  - Alopecia [Unknown]
  - Disturbance in attention [Unknown]
  - General physical condition abnormal [Unknown]
  - Malaise [Unknown]
  - Lethargy [Unknown]
  - Impaired work ability [Unknown]
  - Feeling abnormal [Unknown]
